FAERS Safety Report 10904884 (Version 2)
Quarter: 2015Q1

REPORT INFORMATION
  Report Type: Spontaneous
  Country: PT (occurrence: PT)
  Receive Date: 20150311
  Receipt Date: 20150324
  Transmission Date: 20150721
  Serious: Yes (Other)
  Sender: FDA-Public Use
  Company Number: PT-JNJFOC-20150219876

PATIENT
  Sex: Female

DRUGS (5)
  1. RISPERDAL CONSTA [Suspect]
     Active Substance: RISPERIDONE
     Indication: PRODUCT USED FOR UNKNOWN INDICATION
     Dosage: 25 MG / 2 ML
     Route: 030
     Dates: start: 2012
  2. AKINETON [Concomitant]
     Active Substance: BIPERIDEN HYDROCHLORIDE
     Route: 065
  3. XEPLION [Suspect]
     Active Substance: PALIPERIDONE PALMITATE
     Indication: PRODUCT USED FOR UNKNOWN INDICATION
     Route: 030
  4. CIPRALEX [Concomitant]
     Active Substance: ESCITALOPRAM OXALATE
     Route: 065
  5. LORENIN [Concomitant]
     Active Substance: LORAZEPAM
     Route: 065

REACTIONS (14)
  - Agitation [Unknown]
  - Dyskinesia [Unknown]
  - Alopecia [Unknown]
  - Memory impairment [Unknown]
  - Constipation [Unknown]
  - Insomnia [Unknown]
  - Vomiting [Not Recovered/Not Resolved]
  - Head discomfort [Unknown]
  - Suicidal ideation [Unknown]
  - Depression [Unknown]
  - Abdominal pain upper [Not Recovered/Not Resolved]
  - Motor dysfunction [Unknown]
  - Apathy [Unknown]
  - Muscle disorder [Not Recovered/Not Resolved]
